FAERS Safety Report 8584488-0 (Version None)
Quarter: 2012Q3

REPORT INFORMATION
  Report Type: 
  Country: None (occurrence: None)
  Receive Date: 20120810
  Receipt Date: 20120807
  Transmission Date: 20120928
  Serious: No
  Sender: FDA-Public Use
  Company Number: US-PFIZER INC-2012192547

PATIENT
  Age: 74 Year
  Sex: Female
  Weight: 70.295 kg

DRUGS (5)
  1. PREPARATION H HEMORRHOIDAL SUPPOSITORIES [Suspect]
     Dosage: UNK, 2X/DAY
     Route: 054
     Dates: start: 20120101
  2. OXYCODONE [Concomitant]
     Dosage: 10/325 MG, UNK
  3. XANAX [Concomitant]
     Dosage: 0.5 MG, UNK
  4. NORVASC [Suspect]
     Indication: HYPERTENSION
     Dosage: 10 MG, DAILY
  5. PREPARATION H HEMORRHOIDAL SUPPOSITORIES [Suspect]
     Indication: HAEMORRHAGE
     Dosage: UNK, DAILY
     Route: 054
     Dates: start: 20120701

REACTIONS (3)
  - BLOOD PRESSURE INCREASED [None]
  - MUSCULOSKELETAL DISCOMFORT [None]
  - DRUG INEFFECTIVE [None]
